FAERS Safety Report 4502580-4 (Version None)
Quarter: 2004Q4

REPORT INFORMATION
  Report Type: 
  Country: None (occurrence: None)
  Receive Date: 20041110
  Receipt Date: 20041029
  Transmission Date: 20050328
  Serious: Yes (Hospitalization)
  Sender: FDA-Public Use
  Company Number: DEWYE160729OCT04

PATIENT
  Age: 21 Year
  Sex: Male

DRUGS (5)
  1. VENLAFAXINE HCL [Suspect]
     Dosage: 2 TABLETS (OVERDOSE AMOUNT 125 MG) ORAL
     Route: 048
     Dates: start: 20041028, end: 20041028
  2. RISPERDAL [Suspect]
     Dosage: 6 TABLETS IN 12 HOURS, ORAL
     Route: 048
     Dates: start: 20041028, end: 20041028
  3. STANGYL (TRIMIPRAMINE MALEATE, , 0) [Suspect]
     Dosage: 1 TABLET, ORAL
     Route: 048
     Dates: start: 20041028, end: 20041028
  4. ZOLOFT [Suspect]
     Dosage: 20 TABLETS (OVERDOSE AMOUTN 1000 MG), ORAL
     Route: 048
     Dates: start: 20041028, end: 20041028
  5. ZYPREXA [Suspect]
     Dosage: 3 TABLETS, ORAL
     Route: 048
     Dates: start: 20041028, end: 20041028

REACTIONS (4)
  - DYSARTHRIA [None]
  - INTENTIONAL OVERDOSE [None]
  - MIOSIS [None]
  - TACHYCARDIA [None]
